FAERS Safety Report 15707087 (Version 3)
Quarter: 2019Q1

REPORT INFORMATION
  Report Type: Spontaneous
  Country: US (occurrence: US)
  Receive Date: 20181210
  Receipt Date: 20190111
  Transmission Date: 20190417
  Serious: Yes (Hospitalization, Other)
  Sender: FDA-Public Use
  Company Number: US-UNITED THERAPEUTICS-UNT-2018-020305

PATIENT
  Age: 41 Year
  Sex: Male
  Weight: 83.9 kg

DRUGS (2)
  1. REMODULIN [Suspect]
     Active Substance: TREPROSTINIL
     Indication: PULMONARY ARTERIAL HYPERTENSION
     Dosage: 0.082 ?G/KG, CONTINUING
     Route: 041
     Dates: start: 20130926
  2. TADALAFIL. [Suspect]
     Active Substance: TADALAFIL
     Indication: PRODUCT USED FOR UNKNOWN INDICATION
     Route: 065

REACTIONS (15)
  - Pyrexia [Recovered/Resolved]
  - Urticaria [Recovered/Resolved]
  - Arthralgia [Unknown]
  - Migraine [Recovered/Resolved]
  - Lip swelling [Recovered/Resolved]
  - Pharyngeal oedema [Recovered/Resolved]
  - Swelling face [Not Recovered/Not Resolved]
  - Platelet count decreased [Unknown]
  - Pneumonia [Unknown]
  - Pain [Recovered/Resolved]
  - Pain in jaw [Unknown]
  - Dyspnoea [Unknown]
  - Myalgia [Unknown]
  - Rash [Unknown]
  - Visual impairment [Recovered/Resolved]

NARRATIVE: CASE EVENT DATE: 2018
